FAERS Safety Report 8969014 (Version 1)
Quarter: 2012Q4

REPORT INFORMATION
  Report Type: 
  Country: US (occurrence: US)
  Receive Date: 20121218
  Receipt Date: 20121218
  Transmission Date: 20130627
  Serious: Yes (Other)
  Sender: FDA-Public Use
  Company Number: US-BRISTOL-MYERS SQUIBB COMPANY-16347494

PATIENT
  Age: 3 None
  Sex: Male

DRUGS (6)
  1. ABILIFY [Suspect]
     Indication: SCHIZOPHRENIA
     Dosage: (15mg at mornings and 30mg at nights)
started approximately 1.5 to 2 years ago
  2. LUVOX [Concomitant]
  3. COGENTIN [Concomitant]
  4. METOPROLOL [Concomitant]
  5. SEROQUEL [Concomitant]
  6. ZYPREXA [Concomitant]

REACTIONS (1)
  - Dystonia [Unknown]
